FAERS Safety Report 9519597 (Version 1)
Quarter: 2013Q1

REPORT INFORMATION
  Report Type: Spontaneous
  Country: US (occurrence: None)
  Receive Date: 20130305
  Receipt Date: 20130305
  Transmission Date: 20140127
  Serious: Yes (Disabling, Other)
  Sender: FDA-Public Use
  Company Number: 163-21880-12080815

PATIENT
  Age: 84 Year
  Sex: Male
  Weight: 86.18 kg

DRUGS (1)
  1. REVLIMID ( LENALIDOMIDE) ( CAPSULES) [Suspect]
     Indication: LYMPHOMA
     Dosage: 25 MG. 1 IN 1 D, PO
     Route: 048
     Dates: start: 20120510

REACTIONS (3)
  - Drug ineffective [None]
  - Lymphoma [None]
  - Disease progression [None]
